FAERS Safety Report 14679808 (Version 1)
Quarter: 2018Q1

REPORT INFORMATION
  Report Type: Spontaneous
  Country: US (occurrence: US)
  Receive Date: 20180326
  Receipt Date: 20180326
  Transmission Date: 20180509
  Serious: Yes (Hospitalization)
  Sender: FDA-Public Use
  Company Number: US-LPDUSPRD-20180339

PATIENT
  Age: 53 Year
  Sex: Male

DRUGS (7)
  1. ISOFLURANE. [Suspect]
     Active Substance: ISOFLURANE
     Dosage: UNKNOWN
     Route: 050
  2. PROTAMINE [Concomitant]
     Active Substance: PROTAMINE
     Dosage: UNKNOWN
     Route: 065
  3. ROCURONIUM [Suspect]
     Active Substance: ROCURONIUM BROMIDE
     Dosage: 100 MG
     Route: 042
  4. ETOMIDATE INJECTION (0780-10) [Suspect]
     Active Substance: ETOMIDATE
     Dosage: 20 MG
     Route: 065
  5. MIDAZOLAM [Suspect]
     Active Substance: MIDAZOLAM HYDROCHLORIDE
     Dosage: 8 MG
     Route: 065
  6. FENTANYL. [Suspect]
     Active Substance: FENTANYL
     Dosage: 250 G
     Route: 042
  7. HEPARIN [Concomitant]
     Active Substance: HEPARIN SODIUM
     Dosage: UNKNOWN
     Route: 065

REACTIONS (2)
  - Hyperkalaemia [Recovered/Resolved]
  - Hyperthermia malignant [Recovered/Resolved]
